FAERS Safety Report 7558048-4 (Version None)
Quarter: 2011Q2

REPORT INFORMATION
  Report Type: 
  Country: None (occurrence: None)
  Receive Date: 20110620
  Receipt Date: 20110613
  Transmission Date: 20111010
  Serious: Yes (Death, Other)
  Sender: FDA-Public Use
  Company Number: PHHY2011JP51551

PATIENT
  Age: 60 Year
  Sex: Female

DRUGS (5)
  1. CISPLATIN [Suspect]
     Indication: ADENOCARCINOMA OF THE CERVIX
     Dosage: 5 COURSES
  2. HEPARIN [Suspect]
  3. RADIOTHERAPY [Concomitant]
     Indication: ADENOCARCINOMA OF THE CERVIX
     Dosage: TOTAL 66 GY/BODY
  4. CARBOPLATIN [Suspect]
     Indication: ADENOCARCINOMA OF THE CERVIX
  5. PACLITAXEL [Suspect]
     Indication: ADENOCARCINOMA OF THE CERVIX
     Dosage: UNK

REACTIONS (5)
  - DEEP VEIN THROMBOSIS [None]
  - VOMITING [None]
  - DEATH [None]
  - SEPSIS [None]
  - NAUSEA [None]
